FAERS Safety Report 12632811 (Version 2)
Quarter: 2016Q3

REPORT INFORMATION
  Report Type: Spontaneous
  Country: US (occurrence: US)
  Receive Date: 20160808
  Receipt Date: 20160808
  Transmission Date: 20161109
  Serious: No
  Sender: FDA-Public Use
  Company Number: US-BEH-2015057059

PATIENT
  Sex: Female
  Weight: 65 kg

DRUGS (27)
  1. OXYGEN. [Concomitant]
     Active Substance: OXYGEN
  2. SUCRALFATE. [Concomitant]
     Active Substance: SUCRALFATE
  3. CENTRUM COMPLETE [Concomitant]
  4. HIZENTRA [Suspect]
     Active Substance: HUMAN IMMUNOGLOBULIN G
     Route: 058
  5. DIAZEPAM. [Concomitant]
     Active Substance: DIAZEPAM
  6. METOPROLOL TARTRATE. [Concomitant]
     Active Substance: METOPROLOL TARTRATE
  7. TOPAMAX [Concomitant]
     Active Substance: TOPIRAMATE
  8. NORCO [Concomitant]
     Active Substance: ACETAMINOPHEN\HYDROCODONE BITARTRATE
  9. ROCALTROL [Concomitant]
     Active Substance: CALCITRIOL
  10. HIZENTRA [Suspect]
     Active Substance: HUMAN IMMUNOGLOBULIN G
     Indication: IMMUNODEFICIENCY COMMON VARIABLE
     Route: 058
  11. ACETAMINOPHEN. [Concomitant]
     Active Substance: ACETAMINOPHEN
  12. LISINOPRIL. [Concomitant]
     Active Substance: LISINOPRIL
  13. ZOFRAN [Concomitant]
     Active Substance: ONDANSETRON HYDROCHLORIDE
  14. METHADOSE [Concomitant]
     Active Substance: METHADONE HYDROCHLORIDE
  15. COUMADIN [Concomitant]
     Active Substance: WARFARIN SODIUM
  16. POTASSIUM CL [Concomitant]
     Active Substance: POTASSIUM CHLORIDE
  17. ENULOSE [Concomitant]
     Active Substance: LACTULOSE
  18. HEPARIN [Concomitant]
     Active Substance: HEPARIN SODIUM
  19. CYMBALTA [Concomitant]
     Active Substance: DULOXETINE HYDROCHLORIDE
  20. MAG-OXIDE [Concomitant]
  21. DIPHENHYDRAMINE. [Concomitant]
     Active Substance: DIPHENHYDRAMINE
  22. LASIX [Concomitant]
     Active Substance: FUROSEMIDE
  23. ZITHROMAX [Concomitant]
     Active Substance: AZITHROMYCIN DIHYDRATE
  24. EPIPEN [Concomitant]
     Active Substance: EPINEPHRINE
  25. OSTEO BI-FLEX [Concomitant]
     Active Substance: CHONDROITIN SULFATE A\GLUCOSAMINE
  26. HIZENTRA [Suspect]
     Active Substance: HUMAN IMMUNOGLOBULIN G
     Route: 058
  27. SODIUM CHLORIDE. [Concomitant]
     Active Substance: SODIUM CHLORIDE

REACTIONS (2)
  - Device breakage [Unknown]
  - Inappropriate schedule of drug administration [Unknown]
